FAERS Safety Report 24904073 (Version 1)
Quarter: 2025Q1

REPORT INFORMATION
  Report Type: Spontaneous
  Country: CO (occurrence: CO)
  Receive Date: 20250130
  Receipt Date: 20250130
  Transmission Date: 20250409
  Serious: Yes (Other)
  Sender: ALEXION PHARMACEUTICALS
  Company Number: CO-AstraZeneca-CH-00795458A

PATIENT
  Age: 56 Year
  Weight: 81 kg

DRUGS (1)
  1. LYNPARZA [Suspect]
     Active Substance: OLAPARIB
     Indication: Ovarian cancer
     Dosage: 300 MILLIGRAM, Q12H

REACTIONS (2)
  - Tumour marker increased [Not Recovered/Not Resolved]
  - Drug ineffective [Not Recovered/Not Resolved]
